FAERS Safety Report 16751999 (Version 1)
Quarter: 2019Q3

REPORT INFORMATION
  Report Type: Report from Study
  Country: US (occurrence: US)
  Receive Date: 20190828
  Receipt Date: 20190828
  Transmission Date: 20191005
  Serious: Yes (Hospitalization)
  Sender: FDA-Public Use
  Company Number: US-JNJFOC-20190828475

PATIENT
  Sex: Female
  Weight: 52.21 kg

DRUGS (2)
  1. XARELTO [Suspect]
     Active Substance: RIVAROXABAN
     Indication: CARDIAC ASSISTANCE DEVICE USER
     Dosage: PRESCRIPTION NO: 100009249838
     Route: 048
     Dates: end: 20190814
  2. XARELTO [Suspect]
     Active Substance: RIVAROXABAN
     Dosage: PRESCRIPTION NO: 100009249838
     Route: 048
     Dates: start: 20190818

REACTIONS (2)
  - Haematoma [Recovered/Resolved]
  - Muscle rupture [Recovered/Resolved]
